FAERS Safety Report 15398542 (Version 2)
Quarter: 2019Q3

REPORT INFORMATION
  Report Type: Report from Study
  Country: GB (occurrence: GB)
  Receive Date: 20180918
  Receipt Date: 20190808
  Transmission Date: 20191004
  Serious: Yes (Hospitalization, Other)
  Sender: FDA-Public Use
  Company Number: PHHY2018GB101481

PATIENT
  Age: 68 Year
  Sex: Male

DRUGS (7)
  1. SODIUM ALGINATE+SODIUM BICARBONATE [Suspect]
     Active Substance: SODIUM ALGINATE\SODIUM BICARBONATE
     Indication: PRODUCT USED FOR UNKNOWN INDICATION
     Dosage: UNK UNK, PRN (100/500 MG
     Route: 048
  2. BUMETANIDE. [Concomitant]
     Active Substance: BUMETANIDE
     Indication: PRODUCT USED FOR UNKNOWN INDICATION
     Dosage: 1 MG, QD
     Route: 048
     Dates: start: 201712, end: 20180320
  3. ENTRESTO [Suspect]
     Active Substance: SACUBITRIL\VALSARTAN
     Indication: CARDIAC FAILURE CHRONIC
     Dosage: 50 MG, (SACUBITRIL 24 AND VALSARTAN 26MG) BID
     Route: 048
     Dates: start: 20171102, end: 20180123
  4. ENTRESTO [Suspect]
     Active Substance: SACUBITRIL\VALSARTAN
     Dosage: 100 MG, (SACUBITRIL 49 MG AND VALSARTAN 51 MG) BID
     Route: 048
     Dates: start: 20180123, end: 20180413
  5. ENTRESTO [Suspect]
     Active Substance: SACUBITRIL\VALSARTAN
     Dosage: 200 MG, (SACUBITRIL 97MG AND VALSARTAN 103MG) BID
     Route: 048
     Dates: start: 20180413
  6. DEXAMETHASONE. [Suspect]
     Active Substance: DEXAMETHASONE
     Indication: PRODUCT USED FOR UNKNOWN INDICATION
     Dosage: 0.1 %, QD
     Route: 047
  7. WARFARIN [Concomitant]
     Active Substance: WARFARIN
     Indication: PRODUCT USED FOR UNKNOWN INDICATION
     Dosage: 1 MG, PRN (1 MG OR3 MG (VARIABLE DOSE), PRN)
     Route: 048
     Dates: start: 2007

REACTIONS (7)
  - Syncope [Recovered/Resolved]
  - Blood pressure decreased [Recovered/Resolved]
  - Ventricular tachycardia [Recovering/Resolving]
  - Dehydration [Recovered/Resolved]
  - Circulatory collapse [Recovering/Resolving]
  - Atrial tachycardia [Unknown]
  - Blood creatinine increased [Unknown]

NARRATIVE: CASE EVENT DATE: 20180110
